FAERS Safety Report 6196751-1 (Version None)
Quarter: 2009Q2

REPORT INFORMATION
  Report Type: 
  Country: None (occurrence: None)
  Receive Date: 20090520
  Receipt Date: 20090515
  Transmission Date: 20091009
  Serious: Yes (Hospitalization, Disabling)
  Sender: FDA-Public Use
  Company Number: US-MERCK-0905USA01289

PATIENT
  Age: 40 Year
  Sex: Female

DRUGS (3)
  1. JANUMET [Suspect]
     Indication: TYPE 2 DIABETES MELLITUS
     Route: 048
     Dates: start: 20090424, end: 20090501
  2. METFORMIN [Concomitant]
     Route: 065
     Dates: end: 20090423
  3. METFORMIN [Concomitant]
     Route: 065
     Dates: start: 20090501

REACTIONS (1)
  - GUILLAIN-BARRE SYNDROME [None]
